FAERS Safety Report 10665436 (Version 1)
Quarter: 2014Q4

REPORT INFORMATION
  Report Type: Spontaneous
  Country: JP (occurrence: JP)
  Receive Date: 20141219
  Receipt Date: 20141219
  Transmission Date: 20150529
  Serious: Yes (Hospitalization, Other)
  Sender: FDA-Public Use
  Company Number: JP-BRISTOL-MYERS SQUIBB COMPANY-BMS-2014-001428

PATIENT
  Age: 80 Year
  Sex: Female

DRUGS (6)
  1. ELIQUIS [Suspect]
     Active Substance: APIXABAN
     Indication: CEREBROVASCULAR ACCIDENT PROPHYLAXIS
     Dosage: 2.5 MG, QD
     Route: 048
     Dates: start: 20140905, end: 20140922
  2. SG                                 /01737201/ [Concomitant]
  3. NICOTINAMIDE [Concomitant]
     Active Substance: NIACINAMIDE
  4. EBASTEL [Concomitant]
     Active Substance: EBASTINE
  5. URSO [Concomitant]
     Active Substance: URSODIOL
  6. LENDORMIN [Concomitant]
     Active Substance: BROTIZOLAM

REACTIONS (2)
  - Fall [Unknown]
  - Subdural haematoma [Recovered/Resolved]

NARRATIVE: CASE EVENT DATE: 20140918
